FAERS Safety Report 9470525 (Version 2)
Quarter: 2013Q3

REPORT INFORMATION
  Report Type: Spontaneous
  Country: JP (occurrence: JP)
  Receive Date: 20130822
  Receipt Date: 20130827
  Transmission Date: 20140515
  Serious: Yes (Other)
  Sender: FDA-Public Use
  Company Number: JP-SANOFI-AVENTIS-2013SA083824

PATIENT
  Age: 36 Year
  Sex: Female

DRUGS (2)
  1. MYSLEE [Suspect]
     Indication: PRODUCT USED FOR UNKNOWN INDICATION
     Route: 048
  2. REFLEX [Concomitant]

REACTIONS (3)
  - Road traffic accident [Unknown]
  - Anterograde amnesia [Unknown]
  - Alcohol interaction [Unknown]
